FAERS Safety Report 10286478 (Version 2)
Quarter: 2014Q1

REPORT INFORMATION
  Report Type: Spontaneous
  Country: US (occurrence: None)
  Receive Date: 20120817
  Receipt Date: 20130815
  Transmission Date: 20141002
  Serious: Yes (Other)
  Sender: FDA-Public Use
  Company Number: ADR-2012-01075

PATIENT
  Sex: Male

DRUGS (3)
  1. BACLOFEN INTRATHECAL (BACLOFEN INJECTION) [Suspect]
     Indication: MUSCLE SPASTICITY
  2. BACLOFEN INTRATHECAL (BACLOFEN INJECTION) [Suspect]
     Indication: HEAD INJURY
  3. BACLOFEN INTRATHECAL (BACLOFEN INJECTION) [Suspect]
     Indication: BRAIN INJURY

REACTIONS (9)
  - Muscle spasms [None]
  - Drug withdrawal syndrome [None]
  - Pneumonia [None]
  - Overdose [None]
  - Hypotonia [None]
  - Hyperhidrosis [None]
  - Pyrexia [None]
  - Agitation [None]
  - Discomfort [None]
